FAERS Safety Report 11807374 (Version 1)
Quarter: 2015Q4

REPORT INFORMATION
  Report Type: Spontaneous
  Country: FR (occurrence: FR)
  Receive Date: 20151207
  Receipt Date: 20151207
  Transmission Date: 20160305
  Serious: Yes (Hospitalization)
  Sender: FDA-Public Use
  Company Number: FR-009507513-1512FRA002608

PATIENT
  Age: 80 Year
  Sex: Female

DRUGS (4)
  1. ALOPLASTINE [Suspect]
     Active Substance: GLYCERIN\TALC\ZINC OXIDE
     Dosage: UNK
     Route: 050
     Dates: start: 20151008, end: 20151017
  2. DIPROSONE [Suspect]
     Active Substance: BETAMETHASONE DIPROPIONATE
     Dosage: UNK
     Route: 050
     Dates: start: 20151008, end: 20151017
  3. NEUROTIN (ACETYLCARNITINE HYDROCHLORIDE) [Suspect]
     Active Substance: ACETYLCARNITINE HYDROCHLORIDE
     Dosage: 300 MG, TID
     Route: 048
     Dates: start: 20151008, end: 20151017
  4. LAMISIL [Suspect]
     Active Substance: TERBINAFINE HYDROCHLORIDE
     Dosage: UNK
     Route: 050
     Dates: start: 20151008, end: 20151017

REACTIONS (2)
  - Eosinophilia [Unknown]
  - Toxic skin eruption [Unknown]

NARRATIVE: CASE EVENT DATE: 20151012
